FAERS Safety Report 12228393 (Version 1)
Quarter: 2016Q1

REPORT INFORMATION
  Report Type: Spontaneous
  Country: US (occurrence: None)
  Receive Date: 20160330
  Receipt Date: 20160330
  Transmission Date: 20160526
  Serious: Yes (Life-Threatening, Hospitalization)
  Sender: FDA-Public Use
  Company Number: None

PATIENT
  Age: 67 Year
  Sex: Male
  Weight: 95.26 kg

DRUGS (1)
  1. PROTAMINE SULFATE 50 MG/5ML FRESENIUS KABI USA, UC [Suspect]
     Active Substance: PROTAMINE SULFATE
     Indication: HEPARIN NEUTRALISATION THERAPY
     Route: 042
     Dates: start: 20160315

REACTIONS (4)
  - Burning sensation [None]
  - Pain in extremity [None]
  - Malaise [None]
  - Respiratory arrest [None]

NARRATIVE: CASE EVENT DATE: 20160315
